FAERS Safety Report 4515544-1 (Version None)
Quarter: 2004Q4

REPORT INFORMATION
  Report Type: 
  Country: None (occurrence: None)
  Receive Date: 20041126
  Receipt Date: 20041112
  Transmission Date: 20050328
  Serious: Yes (Disabling, Other)
  Sender: FDA-Public Use
  Company Number: 2004004555

PATIENT
  Sex: Male
  Weight: 95.2554 kg

DRUGS (3)
  1. NARDIL [Suspect]
     Indication: ANXIETY
     Dosage: 45 MG (45 MG, 1IN 1 D), ORAL
     Route: 048
     Dates: start: 19850101
  2. NARDIL [Suspect]
     Indication: DEPRESSION
     Dosage: 45 MG (45 MG, 1IN 1 D), ORAL
     Route: 048
     Dates: start: 19850101
  3. ALPRAZOLAM [Suspect]
     Indication: PANIC ATTACK
     Dosage: ORAL
     Route: 048
     Dates: start: 19850101

REACTIONS (28)
  - AMNESIA [None]
  - ARTIFICIAL CROWN PROCEDURE [None]
  - ASTHENIA [None]
  - BACK INJURY [None]
  - BEDRIDDEN [None]
  - BRAIN DAMAGE [None]
  - CONDITION AGGRAVATED [None]
  - CONFUSIONAL STATE [None]
  - DELIRIUM TREMENS [None]
  - DEPRESSION [None]
  - DRUG INEFFECTIVE [None]
  - DRY MOUTH [None]
  - FALL [None]
  - FATIGUE [None]
  - GASTROINTESTINAL DISORDER [None]
  - MULTIPLE SCLEROSIS [None]
  - MUSCULAR WEAKNESS [None]
  - OXYGEN SATURATION DECREASED [None]
  - PANIC ATTACK [None]
  - PHARMACEUTICAL PRODUCT COMPLAINT [None]
  - SELF-MEDICATION [None]
  - SEXUAL DYSFUNCTION [None]
  - SLEEP APNOEA SYNDROME [None]
  - SLEEP ATTACKS [None]
  - SNORING [None]
  - SOMNOLENCE [None]
  - THERAPEUTIC RESPONSE UNEXPECTED WITH DRUG SUBSTITUTION [None]
  - TREATMENT NONCOMPLIANCE [None]
